FAERS Safety Report 8265880-0 (Version None)
Quarter: 2012Q2

REPORT INFORMATION
  Report Type: 
  Country: None (occurrence: None)
  Receive Date: 20120406
  Receipt Date: 20120301
  Transmission Date: 20120825
  Serious: Yes (Hospitalization)
  Sender: FDA-Public Use
  Company Number: JP-GLAXOSMITHKLINE-B0785563A

PATIENT
  Sex: Male

DRUGS (9)
  1. CLAFORAN [Concomitant]
     Indication: INFECTION
     Dosage: 2G PER DAY
     Dates: start: 20120128, end: 20120201
  2. LAMICTAL [Suspect]
     Indication: EPILEPSY
     Dosage: 200MG PER DAY
     Route: 048
     Dates: start: 20120110, end: 20120206
  3. FEROTYM [Concomitant]
     Indication: IRON DEFICIENCY ANAEMIA
     Dosage: 150MG PER DAY
     Route: 048
     Dates: start: 20120118, end: 20120217
  4. SEPAZON [Concomitant]
     Indication: DEPRESSION
     Dosage: 1MG PER DAY
     Route: 048
     Dates: start: 20120112
  5. LOXONIN [Concomitant]
     Indication: ANALGESIC THERAPY
     Dosage: 180MG PER DAY
     Route: 048
     Dates: start: 20120113, end: 20120130
  6. SELBEX [Concomitant]
     Indication: ANALGESIC THERAPY
     Dosage: 150MG PER DAY
     Route: 048
     Dates: start: 20120101, end: 20120205
  7. FLOMOX [Concomitant]
     Indication: INFECTION
     Dosage: 300MG PER DAY
     Route: 048
     Dates: start: 20120202, end: 20120206
  8. VOLTAREN [Concomitant]
     Indication: ANALGESIC THERAPY
     Dosage: 75MG PER DAY
     Route: 048
     Dates: start: 20120101, end: 20120205
  9. LEVOTOMIN [Concomitant]
     Indication: SEDATION
     Dosage: 10MG PER DAY
     Route: 048

REACTIONS (11)
  - ERYTHEMA [None]
  - ORAL MUCOSAL ERYTHEMA [None]
  - HEPATIC FUNCTION ABNORMAL [None]
  - RASH [None]
  - PRURITUS [None]
  - ENANTHEMA [None]
  - ALANINE AMINOTRANSFERASE INCREASED [None]
  - URTICARIA [None]
  - BLOOD LACTATE DEHYDROGENASE INCREASED [None]
  - C-REACTIVE PROTEIN INCREASED [None]
  - GAMMA-GLUTAMYLTRANSFERASE INCREASED [None]
